FAERS Safety Report 19218868 (Version 1)
Quarter: 2021Q2

REPORT INFORMATION
  Report Type: Spontaneous
  Country: CN (occurrence: CN)
  Receive Date: 20210505
  Receipt Date: 20210505
  Transmission Date: 20210717
  Serious: Yes (Hospitalization)
  Sender: FDA-Public Use
  Company Number: CN-ASTRAZENECA-2021A373809

PATIENT
  Age: 17897 Day
  Sex: Female
  Weight: 64 kg

DRUGS (2)
  1. TAGRISSO [Suspect]
     Active Substance: OSIMERTINIB
     Indication: LUNG NEOPLASM MALIGNANT
     Route: 048
     Dates: start: 20210416, end: 20210419
  2. TAGRISSO [Suspect]
     Active Substance: OSIMERTINIB
     Indication: DRUG THERAPY
     Route: 048
     Dates: start: 20210416, end: 20210419

REACTIONS (2)
  - Urticaria [Recovered/Resolved]
  - Rash maculo-papular [Recovered/Resolved]

NARRATIVE: CASE EVENT DATE: 20210419
